FAERS Safety Report 7138849-7 (Version None)
Quarter: 2010Q4

REPORT INFORMATION
  Report Type: 
  Country: None (occurrence: None)
  Receive Date: 20101206
  Receipt Date: 20101130
  Transmission Date: 20110411
  Serious: Yes (Other)
  Sender: FDA-Public Use
  Company Number: US-BRISTOL-MYERS SQUIBB COMPANY-15379928

PATIENT
  Age: 35 Year
  Sex: Male

DRUGS (1)
  1. SPRYCEL [Suspect]
     Indication: CHRONIC MYELOID LEUKAEMIA
     Dosage: INTERRUPTED AND RESTARTED
     Route: 048
     Dates: start: 20101008

REACTIONS (2)
  - ANAPHYLACTIC REACTION [None]
  - WEIGHT INCREASED [None]
